FAERS Safety Report 24393515 (Version 2)
Quarter: 2024Q4

REPORT INFORMATION
  Report Type: Spontaneous
  Country: RO (occurrence: RO)
  Receive Date: 20241003
  Receipt Date: 20241016
  Transmission Date: 20250114
  Serious: Yes (Hospitalization, Other)
  Sender: MYLAN
  Company Number: None

PATIENT
  Age: 62 Year
  Sex: Female

DRUGS (44)
  1. LEFLUNOMIDE [Suspect]
     Active Substance: LEFLUNOMIDE
     Indication: Rheumatoid arthritis
     Dosage: 20 MILLIGRAM
     Route: 065
  2. ALPRAZOLAM [Concomitant]
     Active Substance: ALPRAZOLAM
     Indication: Anxiety
     Dosage: 1 MILLIGRAM
     Route: 065
  3. ALPRAZOLAM [Concomitant]
     Active Substance: ALPRAZOLAM
     Indication: Anhedonia
  4. ALPRAZOLAM [Concomitant]
     Active Substance: ALPRAZOLAM
     Indication: Headache
  5. ALPRAZOLAM [Concomitant]
     Active Substance: ALPRAZOLAM
     Indication: Depression
  6. ALPRAZOLAM [Concomitant]
     Active Substance: ALPRAZOLAM
     Indication: Dizziness
  7. PIRACETAM [Concomitant]
     Active Substance: PIRACETAM
     Indication: Dizziness
     Dosage: 800 MILLIGRAM
     Route: 065
  8. PIRACETAM [Concomitant]
     Active Substance: PIRACETAM
     Indication: Headache
  9. PIRACETAM [Concomitant]
     Active Substance: PIRACETAM
     Indication: Neck pain
  10. PIRACETAM [Concomitant]
     Active Substance: PIRACETAM
     Indication: Anhedonia
  11. PIRACETAM [Concomitant]
     Active Substance: PIRACETAM
     Indication: Depression
  12. PIRACETAM [Concomitant]
     Active Substance: PIRACETAM
     Indication: Anxiety
  13. ACECLOFENAC [Concomitant]
     Active Substance: ACECLOFENAC
     Indication: Rheumatoid arthritis
     Dosage: 200 MILLIGRAM
     Route: 065
  14. OLANZAPINE [Concomitant]
     Active Substance: OLANZAPINE
     Indication: Anhedonia
     Dosage: 5 MILLIGRAM
     Route: 065
  15. OLANZAPINE [Concomitant]
     Active Substance: OLANZAPINE
     Indication: Depression
  16. OLANZAPINE [Concomitant]
     Active Substance: OLANZAPINE
     Indication: Anxiety
  17. OLANZAPINE [Concomitant]
     Active Substance: OLANZAPINE
     Indication: Headache
  18. OLANZAPINE [Concomitant]
     Active Substance: OLANZAPINE
     Indication: Dizziness
  19. OLANZAPINE [Concomitant]
     Active Substance: OLANZAPINE
     Indication: Mental disorder
  20. MIRTAZAPINE [Concomitant]
     Active Substance: MIRTAZAPINE
     Indication: Anxiety
     Dosage: 15 MILLIGRAM
     Route: 065
  21. MIRTAZAPINE [Concomitant]
     Active Substance: MIRTAZAPINE
     Indication: Depression
     Dosage: 30 MILLIGRAM (INCREASED DOSE)
     Route: 065
  22. MIRTAZAPINE [Concomitant]
     Active Substance: MIRTAZAPINE
     Indication: Headache
  23. MIRTAZAPINE [Concomitant]
     Active Substance: MIRTAZAPINE
     Indication: Dizziness
  24. MIRTAZAPINE [Concomitant]
     Active Substance: MIRTAZAPINE
     Indication: Anhedonia
  25. MIRTAZAPINE [Concomitant]
     Active Substance: MIRTAZAPINE
     Indication: Mental disorder
  26. AMISULPRIDE [Concomitant]
     Active Substance: AMISULPRIDE
     Indication: Depression
     Dosage: 100 MILLIGRAM
     Route: 065
  27. AMISULPRIDE [Concomitant]
     Active Substance: AMISULPRIDE
     Indication: Headache
  28. AMISULPRIDE [Concomitant]
     Active Substance: AMISULPRIDE
     Indication: Dizziness
  29. AMISULPRIDE [Concomitant]
     Active Substance: AMISULPRIDE
     Indication: Anhedonia
  30. AMISULPRIDE [Concomitant]
     Active Substance: AMISULPRIDE
     Indication: Anxiety
  31. AMISULPRIDE [Concomitant]
     Active Substance: AMISULPRIDE
     Indication: Mental disorder
  32. VORTIOXETINE [Concomitant]
     Active Substance: VORTIOXETINE
     Indication: Anhedonia
     Dosage: 20 MILLIGRAM
     Route: 065
  33. VORTIOXETINE [Concomitant]
     Active Substance: VORTIOXETINE
     Indication: Dizziness
  34. VORTIOXETINE [Concomitant]
     Active Substance: VORTIOXETINE
     Indication: Headache
  35. VORTIOXETINE [Concomitant]
     Active Substance: VORTIOXETINE
     Indication: Anxiety
  36. VORTIOXETINE [Concomitant]
     Active Substance: VORTIOXETINE
     Indication: Depression
  37. VORTIOXETINE [Concomitant]
     Active Substance: VORTIOXETINE
     Indication: Mental disorder
  38. VALPROIC ACID [Concomitant]
     Active Substance: VALPROIC ACID
     Indication: Dizziness
     Dosage: 600 MILLIGRAM
     Route: 065
  39. VALPROIC ACID [Concomitant]
     Active Substance: VALPROIC ACID
     Indication: Anxiety
  40. VALPROIC ACID [Concomitant]
     Active Substance: VALPROIC ACID
     Indication: Anhedonia
  41. VALPROIC ACID [Concomitant]
     Active Substance: VALPROIC ACID
     Indication: Headache
  42. VALPROIC ACID [Concomitant]
     Active Substance: VALPROIC ACID
     Indication: Depression
  43. SULFASALAZINE [Concomitant]
     Active Substance: SULFASALAZINE
     Indication: Rheumatoid arthritis
     Dosage: 3000 MILLIGRAM
     Route: 065
  44. SULFASALAZINE [Concomitant]
     Active Substance: SULFASALAZINE
     Dosage: 2000 MILLIGRAM (REDUCED DOSE)
     Route: 065

REACTIONS (2)
  - Depression [Recovering/Resolving]
  - Drug ineffective [Recovered/Resolved]
